FAERS Safety Report 20717704 (Version 2)
Quarter: 2022Q4

REPORT INFORMATION
  Report Type: Spontaneous
  Country: US (occurrence: US)
  Receive Date: 20220417
  Receipt Date: 20221107
  Transmission Date: 20230113
  Serious: Yes (Other)
  Sender: FDA-Public Use
  Company Number: US-CELGENE-USA-20220300244

PATIENT
  Age: 64 Year
  Sex: Male

DRUGS (4)
  1. REVLIMID [Suspect]
     Active Substance: LENALIDOMIDE
     Indication: Chronic lymphocytic leukaemia
     Route: 048
  2. IMBRUVICA [Suspect]
     Active Substance: IBRUTINIB
     Indication: Chronic lymphocytic leukaemia
     Route: 048
     Dates: start: 20210224
  3. IMBRUVICA [Suspect]
     Active Substance: IBRUTINIB
     Dosage: 420 MILLIGRAM
     Route: 048
     Dates: start: 202102
  4. PFIZER-BIONTECH COVID-19 VACCINE [Concomitant]
     Active Substance: TOZINAMERAN
     Indication: COVID-19 immunisation
     Dosage: TOTAL
     Route: 065

REACTIONS (17)
  - Prostate cancer [Unknown]
  - Trismus [Recovering/Resolving]
  - Prostatic specific antigen increased [Recovering/Resolving]
  - Hair texture abnormal [Unknown]
  - Muscle spasms [Not Recovered/Not Resolved]
  - Onychoclasis [Unknown]
  - Haemorrhage [Unknown]
  - Tooth disorder [Recovering/Resolving]
  - Diarrhoea [Recovering/Resolving]
  - COVID-19 [Unknown]
  - Contusion [Unknown]
  - Off label use [Unknown]
  - Adenocarcinoma [Unknown]
  - Free prostate-specific antigen positive [Unknown]
  - Platelet disorder [Unknown]
  - Hyperviscosity syndrome [Unknown]
  - Ecchymosis [Unknown]

NARRATIVE: CASE EVENT DATE: 20210101
